FAERS Safety Report 15903529 (Version 2)
Quarter: 2019Q1

REPORT INFORMATION
  Report Type: Spontaneous
  Country: US (occurrence: US)
  Receive Date: 20190203
  Receipt Date: 20190208
  Transmission Date: 20190417
  Serious: No
  Sender: FDA-Public Use
  Company Number: US-009507513-1901USA012194

PATIENT
  Sex: Female

DRUGS (1)
  1. NEXPLANON [Suspect]
     Active Substance: ETONOGESTREL
     Dosage: 1 ROD IN THE LEFT ARM
     Route: 058
     Dates: start: 201809

REACTIONS (4)
  - Device deployment issue [Not Recovered/Not Resolved]
  - Implant site pain [Not Recovered/Not Resolved]
  - Mood altered [Not Recovered/Not Resolved]
  - Complication associated with device [Not Recovered/Not Resolved]
